FAERS Safety Report 7553635-1 (Version None)
Quarter: 2011Q2

REPORT INFORMATION
  Report Type: 
  Country: None (occurrence: None)
  Receive Date: 20110617
  Receipt Date: 20100512
  Transmission Date: 20111010
  Serious: No
  Sender: FDA-Public Use
  Company Number: US-MYLANLABS-2010S1008573

PATIENT
  Age: 57 Year
  Sex: Male
  Weight: 89.81 kg

DRUGS (2)
  1. COUMADIN [Concomitant]
     Indication: AORTIC VALVE REPLACEMENT
     Dosage: STARTED AROUND 26 YEARS AGO.
  2. OMEPRAZOLE [Suspect]
     Indication: GASTROOESOPHAGEAL REFLUX DISEASE
     Route: 048
     Dates: start: 20090101

REACTIONS (1)
  - FALSE POSITIVE INVESTIGATION RESULT [None]
